FAERS Safety Report 9673324 (Version 3)
Quarter: 2014Q2

REPORT INFORMATION
  Report Type: Spontaneous
  Country: US (occurrence: US)
  Receive Date: 20131106
  Receipt Date: 20140402
  Transmission Date: 20141212
  Serious: No
  Sender: FDA-Public Use
  Company Number: US-AMGEN-USASP2013071365

PATIENT
  Age: 56 Year
  Sex: Female

DRUGS (1)
  1. ENBREL [Suspect]
     Indication: PSORIASIS
     Dosage: 50 MG, QWK
     Route: 065
     Dates: start: 20080208, end: 2013

REACTIONS (4)
  - Injection site extravasation [Recovered/Resolved]
  - Pain in extremity [Recovered/Resolved]
  - Injection site swelling [Unknown]
  - Psoriasis [Not Recovered/Not Resolved]
